FAERS Safety Report 19221924 (Version 3)
Quarter: 2021Q2

REPORT INFORMATION
  Report Type: Spontaneous
  Country: US (occurrence: US)
  Receive Date: 20210506
  Receipt Date: 20210629
  Transmission Date: 20210717
  Serious: Yes (Other)
  Sender: FDA-Public Use
  Company Number: US-PFIZER INC-2021385080

PATIENT
  Age: 25 Year
  Sex: Female

DRUGS (3)
  1. XELJANZ XR [Suspect]
     Active Substance: TOFACITINIB CITRATE
     Dosage: 11 MG
     Dates: start: 20210310
  2. XELJANZ XR [Suspect]
     Active Substance: TOFACITINIB CITRATE
     Dosage: 11 MG
     Dates: start: 20210314
  3. XELJANZ XR [Suspect]
     Active Substance: TOFACITINIB CITRATE
     Dosage: 11 MG
     Dates: start: 20210311

REACTIONS (6)
  - Drug ineffective [Unknown]
  - Product dose omission issue [Unknown]
  - Feeling abnormal [Unknown]
  - Memory impairment [Unknown]
  - Fatigue [Unknown]
  - Aphasia [Unknown]

NARRATIVE: CASE EVENT DATE: 2021
